FAERS Safety Report 4309401-3 (Version None)
Quarter: 2004Q1

REPORT INFORMATION
  Report Type: 
  Country: None (occurrence: None)
  Receive Date: 20040301
  Receipt Date: 20040218
  Transmission Date: 20041129
  Serious: Yes (Death)
  Sender: FDA-Public Use
  Company Number: US-JNJFOC-20040204488

PATIENT
  Age: 23 Year
  Sex: Male

DRUGS (1)
  1. DURAGESIC [Suspect]
     Indication: INTENTIONAL MISUSE
     Dosage: INJECTION

REACTIONS (3)
  - DRUG ABUSER [None]
  - INTENTIONAL MISUSE [None]
  - OVERDOSE [None]
